FAERS Safety Report 7149524-7 (Version None)
Quarter: 2010Q4

REPORT INFORMATION
  Report Type: 
  Country: None (occurrence: None)
  Receive Date: 20101209
  Receipt Date: 20101129
  Transmission Date: 20110411
  Serious: Yes (Other)
  Sender: FDA-Public Use
  Company Number: US-WATSON-2010-15641

PATIENT
  Age: 53 Year
  Sex: Male

DRUGS (3)
  1. ALLOPURINOL [Suspect]
     Indication: COLITIS ULCERATIVE
     Dosage: 100 MG, DAILY
  2. PREDNISONE [Suspect]
     Indication: COLITIS ULCERATIVE
     Dosage: 20 MG, DAILY
  3. AZATHIOPRINE [Suspect]
     Indication: COLITIS ULCERATIVE
     Dosage: 300 MG, DAILY

REACTIONS (2)
  - HERPES ZOSTER [None]
  - LYMPHOCYTE COUNT DECREASED [None]
